FAERS Safety Report 7545733-3 (Version None)
Quarter: 2011Q2

REPORT INFORMATION
  Report Type: 
  Country: None (occurrence: None)
  Receive Date: 20110613
  Receipt Date: 20110613
  Transmission Date: 20111010
  Serious: Yes (Hospitalization, Disabling)
  Sender: FDA-Public Use
  Company Number: None

PATIENT

DRUGS (1)
  1. IRON DEXTRAN [Suspect]
     Dosage: 25MG ONCE IV
     Route: 042
     Dates: start: 20110608, end: 20110608

REACTIONS (5)
  - HEART RATE INCREASED [None]
  - CHEST PAIN [None]
  - TACHYCARDIA [None]
  - DYSPNOEA [None]
  - DRUG HYPERSENSITIVITY [None]
